FAERS Safety Report 6484314-X (Version None)
Quarter: 2009Q4

REPORT INFORMATION
  Report Type: 
  Country: None (occurrence: None)
  Receive Date: 20091209
  Receipt Date: 20090528
  Transmission Date: 20100525
  Serious: No
  Sender: FDA-Public Use
  Company Number: US-AMGEN-KDL348956

PATIENT
  Sex: Male

DRUGS (2)
  1. ENBREL [Suspect]
     Indication: PSORIATIC ARTHROPATHY
     Route: 058
     Dates: start: 20060926
  2. ENBREL [Suspect]
     Indication: PSORIASIS

REACTIONS (2)
  - LOWER RESPIRATORY TRACT INFECTION [None]
  - PSORIASIS [None]
